FAERS Safety Report 4324202-8 (Version None)
Quarter: 2004Q1

REPORT INFORMATION
  Report Type: 
  Country: None (occurrence: None)
  Receive Date: 20040326
  Receipt Date: 20040106
  Transmission Date: 20041129
  Serious: No
  Sender: FDA-Public Use
  Company Number: US-GLAXOSMITHKLINE-A0491741A

PATIENT
  Age: 42 Year
  Sex: Female

DRUGS (7)
  1. ADVAIR DISKUS 100/50 [Suspect]
     Indication: ASTHMA
     Dosage: 2 PER DAY
     Route: 055
     Dates: start: 20031226
  2. AQUATABS [Concomitant]
  3. BIAXIN XL [Concomitant]
  4. PREDNISONE [Concomitant]
  5. PROMETHAZINE [Concomitant]
     Route: 065
  6. ENBREL [Concomitant]
  7. CODEINE [Concomitant]
     Route: 048

REACTIONS (1)
  - ORAL CANDIDIASIS [None]
